FAERS Safety Report 17315554 (Version 7)
Quarter: 2020Q3

REPORT INFORMATION
  Report Type: Report from Study
  Country: GB (occurrence: GB)
  Receive Date: 20200124
  Receipt Date: 20200727
  Transmission Date: 20201104
  Serious: Yes (Hospitalization)
  Sender: FDA-Public Use
  Company Number: GB-ROCHE-2524924

PATIENT
  Age: 66 Year
  Sex: Female

DRUGS (24)
  1. LEVOTHYROXINE. [Concomitant]
     Active Substance: LEVOTHYROXINE
     Indication: HYPOTHYROIDISM
     Route: 048
     Dates: start: 20160906
  2. INDIVINA [Concomitant]
     Active Substance: ESTRADIOL VALERATE\MEDROXYPROGESTERONE ACETATE
     Indication: HORMONE REPLACEMENT THERAPY
  3. RANITIDINE. [Concomitant]
     Active Substance: RANITIDINE
     Route: 042
     Dates: start: 20191231, end: 20200107
  4. ENOXAPARIN [Concomitant]
     Active Substance: ENOXAPARIN
     Indication: THROMBOSIS
     Route: 058
     Dates: start: 20200113, end: 20200117
  5. GRANISETRON [Concomitant]
     Active Substance: GRANISETRON
     Route: 042
     Dates: start: 20191231, end: 20200107
  6. ATEZOLIZUMAB. [Suspect]
     Active Substance: ATEZOLIZUMAB
     Indication: BREAST CANCER
     Dosage: ON DAYS 1 AND 15 OF EACH 28 DAYS CYCLE?AT 12:54 ON 31/DEC/2019, RECEIVED MOST RECENT DOSE PRIOR TO S
     Route: 041
     Dates: start: 20191231
  7. CANDESARTAN. [Concomitant]
     Active Substance: CANDESARTAN
     Indication: HYPERTENSION
     Route: 048
     Dates: start: 20160906
  8. PARACETAMOL [Concomitant]
     Active Substance: ACETAMINOPHEN
     Indication: ARTHRALGIA
     Route: 048
     Dates: start: 20191205
  9. LOPERAMIDE [Concomitant]
     Active Substance: LOPERAMIDE
     Indication: DIARRHOEA
     Route: 048
     Dates: start: 20200104, end: 20200104
  10. CETIRIZINE [Concomitant]
     Active Substance: CETIRIZINE HYDROCHLORIDE
     Indication: HYPERSENSITIVITY
     Route: 048
     Dates: start: 20200113, end: 20200117
  11. DEXAMETHASONE. [Concomitant]
     Active Substance: DEXAMETHASONE
     Route: 042
     Dates: start: 20191231, end: 20200107
  12. LOPERAMIDE [Suspect]
     Active Substance: LOPERAMIDE
     Indication: BREAST CANCER
     Dosage: ON 12/JAN/2020, RECEIVED MOST RECENT DOSE PRIOR TO SAE? 2 MG
     Route: 048
     Dates: start: 20200104
  13. ATORVASTATIN [Concomitant]
     Active Substance: ATORVASTATIN
     Indication: CARDIOVASCULAR DISORDER
     Route: 048
     Dates: start: 20160906
  14. INDIVINA [Concomitant]
     Active Substance: ESTRADIOL VALERATE\MEDROXYPROGESTERONE ACETATE
     Indication: MENOPAUSE
     Route: 048
     Dates: start: 2012
  15. RENNIE (UNITED KINGDOM) [Concomitant]
     Indication: DYSPEPSIA
     Route: 048
     Dates: start: 20200103, end: 20200104
  16. TAZOCIN [Concomitant]
     Active Substance: PIPERACILLIN SODIUM\TAZOBACTAM SODIUM
     Indication: PYREXIA
     Route: 042
     Dates: start: 20200113, end: 20200113
  17. PACLITAXEL. [Suspect]
     Active Substance: PACLITAXEL
     Indication: BREAST CANCER
     Dosage: ON DAYS 1, 8 AND 15 OF EACH 28 DAY CYCLE?ON 07/JAN/2020 AT 14:43 RECEIVED MOST RECENT DOSE OF 144 MG
     Route: 042
     Dates: start: 20191231
  18. LOPERAMIDE [Concomitant]
     Active Substance: LOPERAMIDE
     Route: 048
     Dates: start: 20200109
  19. OMEPRAZOLE. [Concomitant]
     Active Substance: OMEPRAZOLE
     Indication: DYSPEPSIA
     Route: 048
     Dates: start: 20200110, end: 20200113
  20. OMEPRAZOLE. [Concomitant]
     Active Substance: OMEPRAZOLE
     Route: 048
     Dates: start: 20200114
  21. AMITRIPTYLINE [Concomitant]
     Active Substance: AMITRIPTYLINE
     Indication: MIGRAINE
     Route: 048
     Dates: start: 20170222, end: 20200123
  22. CHLORPHENAMINE [Concomitant]
     Active Substance: CHLORPHENIRAMINE MALEATE
     Route: 042
     Dates: start: 20191231, end: 20200107
  23. IPATASERTIB. [Suspect]
     Active Substance: IPATASERTIB
     Indication: BREAST CANCER
     Dosage: ON DAY 1?21 OF EACH 28 DAYS CYCLE?ON 12/JAN/2020, RECEIVED MOST RECENT DOSE PRIOR TO SAE: 400 MG
     Route: 048
     Dates: start: 20191231
  24. CYCLIZINE [Concomitant]
     Active Substance: CYCLIZINE
     Indication: NAUSEA
     Route: 042
     Dates: start: 20200113, end: 20200113

REACTIONS (1)
  - Gastroenteritis [Recovered/Resolved]

NARRATIVE: CASE EVENT DATE: 20200113
